FAERS Safety Report 19106065 (Version 5)
Quarter: 2021Q3

REPORT INFORMATION
  Report Type: Report from Study
  Country: US (occurrence: US)
  Receive Date: 20210407
  Receipt Date: 20210817
  Transmission Date: 20211014
  Serious: Yes (Hospitalization)
  Sender: FDA-Public Use
  Company Number: NVSC2021US077289

PATIENT
  Age: 70 Year
  Sex: Male
  Weight: 108.84 kg

DRUGS (4)
  1. TREPROSTINIL. [Suspect]
     Active Substance: TREPROSTINIL
     Dosage: UNK
     Route: 065
  2. TREPROSTINIL. [Suspect]
     Active Substance: TREPROSTINIL
     Indication: PULMONARY ARTERIAL HYPERTENSION
     Dosage: UNK (35 NG/KG/MIN)
     Route: 042
     Dates: start: 20200706
  3. OPSUMIT [Concomitant]
     Active Substance: MACITENTAN
     Indication: PRODUCT USED FOR UNKNOWN INDICATION
     Dosage: UNK
     Route: 065
  4. TREPROSTINIL. [Suspect]
     Active Substance: TREPROSTINIL
     Dosage: UNK (40 NG/KG/MIN)
     Route: 042
     Dates: start: 20200706

REACTIONS (7)
  - Pain [Unknown]
  - Gait disturbance [Unknown]
  - Femur fracture [Unknown]
  - Myalgia [Unknown]
  - Headache [Unknown]
  - Lower limb fracture [Unknown]
  - Abdominal discomfort [Unknown]

NARRATIVE: CASE EVENT DATE: 20210506
